FAERS Safety Report 17245759 (Version 5)
Quarter: 2020Q2

REPORT INFORMATION
  Report Type: Spontaneous
  Country: US (occurrence: US)
  Receive Date: 20200108
  Receipt Date: 20200415
  Transmission Date: 20200713
  Serious: No
  Sender: FDA-Public Use
  Company Number: US-BIOGEN-2020BI00825201

PATIENT
  Age: 47 Year
  Sex: Female

DRUGS (1)
  1. TYSABRI [Suspect]
     Active Substance: NATALIZUMAB
     Indication: MULTIPLE SCLEROSIS
     Route: 042
     Dates: start: 20170627

REACTIONS (4)
  - Muscle spasticity [Recovered/Resolved with Sequelae]
  - Neuralgia [Not Recovered/Not Resolved]
  - Prescribed underdose [Unknown]
  - Memory impairment [Unknown]

NARRATIVE: CASE EVENT DATE: 2019
